FAERS Safety Report 7394487-2 (Version None)
Quarter: 2011Q2

REPORT INFORMATION
  Report Type: 
  Country: None (occurrence: None)
  Receive Date: 20110405
  Receipt Date: 20110329
  Transmission Date: 20111010
  Serious: Yes (Life-Threatening)
  Sender: FDA-Public Use
  Company Number: FR-ROCHE-768291

PATIENT

DRUGS (6)
  1. ROCEPHIN [Suspect]
     Route: 042
     Dates: start: 20110214, end: 20110216
  2. AUGMENTIN [Suspect]
     Route: 042
     Dates: start: 20110214, end: 20110214
  3. TAVANIC [Suspect]
     Route: 042
     Dates: start: 20110214, end: 20110220
  4. EUPANTOL [Suspect]
     Route: 042
     Dates: start: 20110214, end: 20110218
  5. VENTOLIN [Concomitant]
     Dosage: AS NEEDED
  6. TAMIFLU [Suspect]
     Route: 048
     Dates: start: 20110214, end: 20110215

REACTIONS (1)
  - CONDITION AGGRAVATED [None]
